FAERS Safety Report 22074812 (Version 1)
Quarter: 2023Q1

REPORT INFORMATION
  Report Type: Spontaneous
  Country: IE (occurrence: IE)
  Receive Date: 20230308
  Receipt Date: 20230308
  Transmission Date: 20230417
  Serious: Yes (Other)
  Sender: FDA-Public Use
  Company Number: IE-TEVA-2023-IE-2863615

PATIENT
  Age: 60 Year
  Sex: Female

DRUGS (8)
  1. PREGABALIN [Suspect]
     Active Substance: PREGABALIN
     Indication: Abdominal pain
     Dosage: LOW-DOSE , 25 MILLIGRAM TWICE DAILY
     Route: 065
  2. MORPHINE SULFATE [Suspect]
     Active Substance: MORPHINE SULFATE
     Indication: Abdominal pain
     Route: 042
  3. PHENOXYBENZAMINE [Suspect]
     Active Substance: PHENOXYBENZAMINE
     Indication: Hypertensive crisis
     Dosage: INITIAL DOSAGE NOT STATED
     Route: 048
  4. PHENOXYBENZAMINE [Suspect]
     Active Substance: PHENOXYBENZAMINE
     Route: 048
  5. ACETAMINOPHEN [Suspect]
     Active Substance: ACETAMINOPHEN
     Indication: Abdominal pain
     Route: 065
  6. LOSARTAN [Concomitant]
     Active Substance: LOSARTAN
     Indication: Hypertension
     Route: 065
  7. TRANEXAMIC ACID [Concomitant]
     Active Substance: TRANEXAMIC ACID
     Indication: Intra-abdominal haemorrhage
     Route: 065
  8. ONDANSETRON [Concomitant]
     Active Substance: ONDANSETRON
     Indication: Product used for unknown indication
     Route: 042

REACTIONS (5)
  - Hypertensive crisis [Unknown]
  - Orthostatic hypotension [Unknown]
  - Nasal congestion [Unknown]
  - Contraindicated product administered [Unknown]
  - Drug ineffective [Unknown]
